FAERS Safety Report 8732747 (Version 3)
Quarter: 2015Q3

REPORT INFORMATION
  Report Type: Report from Study
  Country: DE (occurrence: DE)
  Receive Date: 20120820
  Receipt Date: 20150930
  Transmission Date: 20151125
  Serious: Yes (Death, Hospitalization)
  Sender: FDA-Public Use
  Company Number: DE-ROCHE-728776

PATIENT
  Age: 75 Year
  Sex: Female
  Weight: 71 kg

DRUGS (20)
  1. RENAGEL [Concomitant]
     Active Substance: SEVELAMER HYDROCHLORIDE
     Route: 065
  2. FENTANYL. [Concomitant]
     Active Substance: FENTANYL
     Dosage: 1 PATCH
     Route: 065
  3. 5-FU [Suspect]
     Active Substance: FLUOROURACIL
     Route: 042
     Dates: start: 200712, end: 200802
  4. CLEXANE [Concomitant]
     Active Substance: ENOXAPARIN SODIUM
     Route: 058
  5. BEVACIZUMAB [Suspect]
     Active Substance: BEVACIZUMAB
     Route: 042
     Dates: start: 20110110, end: 201107
  6. BEVACIZUMAB [Suspect]
     Active Substance: BEVACIZUMAB
     Route: 042
     Dates: start: 201109, end: 20120214
  7. 5-FU [Suspect]
     Active Substance: FLUOROURACIL
     Indication: COLORECTAL CANCER METASTATIC
     Route: 042
  8. 5-FU [Suspect]
     Active Substance: FLUOROURACIL
     Route: 042
     Dates: start: 20110110, end: 20120214
  9. AMLODIPIN [Concomitant]
     Active Substance: AMLODIPINE BESYLATE
     Route: 065
  10. BEROTEC [Concomitant]
     Active Substance: FENOTEROL HYDROBROMIDE
     Route: 065
  11. EFFENTORA [Concomitant]
     Active Substance: FENTANYL CITRATE
     Route: 065
  12. FOLINIC ACID [Suspect]
     Active Substance: LEUCOVORIN
     Indication: COLORECTAL CANCER METASTATIC
     Route: 042
     Dates: start: 20100420
  13. 5-FU [Suspect]
     Active Substance: FLUOROURACIL
     Route: 042
  14. FALITHROM [Concomitant]
     Active Substance: PHENPROCOUMON
     Route: 065
  15. BICANORM [Concomitant]
     Active Substance: SODIUM BICARBONATE
     Route: 065
  16. NOVALGIN [Concomitant]
     Active Substance: METAMIZOLE SODIUM
     Dosage: 30 DROPS
     Route: 065
  17. TOREM [Concomitant]
     Active Substance: TORSEMIDE
     Route: 065
  18. BEVACIZUMAB [Suspect]
     Active Substance: BEVACIZUMAB
     Indication: COLORECTAL CANCER METASTATIC
     Route: 042
     Dates: start: 20100420, end: 201008
  19. IRINOTECAN [Suspect]
     Active Substance: IRINOTECAN
     Indication: COLORECTAL CANCER METASTATIC
     Route: 042
     Dates: start: 20100420, end: 20100817
  20. BELOC-ZOK MITE [Concomitant]
     Active Substance: METOPROLOL SUCCINATE
     Route: 065

REACTIONS (8)
  - Death [Fatal]
  - Diarrhoea [Recovered/Resolved]
  - Pleural effusion [Recovering/Resolving]
  - Pulmonary embolism [Recovering/Resolving]
  - Cardiac failure [Recovering/Resolving]
  - Hyperkalaemia [Recovered/Resolved]
  - Diarrhoea [Recovered/Resolved]
  - Dyspnoea [Recovering/Resolving]

NARRATIVE: CASE EVENT DATE: 20100820
